FAERS Safety Report 7685219-9 (Version None)
Quarter: 2011Q3

REPORT INFORMATION
  Report Type: 
  Country: None (occurrence: None)
  Receive Date: 20110816
  Receipt Date: 20110805
  Transmission Date: 20111222
  Serious: Yes (Hospitalization)
  Sender: FDA-Public Use
  Company Number: US-AMGEN-USASP2011039858

PATIENT
  Age: 64 Year
  Sex: Male

DRUGS (1)
  1. ENBREL [Suspect]
     Indication: RHEUMATOID ARTHRITIS
     Dosage: 50 MG, QWK
     Dates: start: 19980101

REACTIONS (5)
  - INJECTION SITE EXTRAVASATION [None]
  - SPINAL FUSION SURGERY [None]
  - INJECTION SITE MASS [None]
  - HIP ARTHROPLASTY [None]
  - SHOULDER ARTHROPLASTY [None]
